FAERS Safety Report 4999532-7 (Version None)
Quarter: 2006Q2

REPORT INFORMATION
  Report Type: 
  Country: None (occurrence: None)
  Receive Date: 20060511
  Receipt Date: 20050125
  Transmission Date: 20061013
  Serious: Yes (Death, Hospitalization, Other)
  Sender: FDA-Public Use
  Company Number: US-MERCK-0501USA04151

PATIENT
  Age: 82 Year
  Sex: Female
  Weight: 65 kg

DRUGS (7)
  1. VIOXX [Suspect]
     Indication: HERNIA PAIN
     Route: 048
     Dates: start: 20000419, end: 20010304
  2. LIPITOR [Concomitant]
     Route: 065
  3. AVAPRO [Concomitant]
     Route: 065
  4. HYDROCHLOROTHIAZIDE [Concomitant]
     Route: 065
  5. PREDNISONE [Concomitant]
     Route: 065
  6. PREMARIN [Concomitant]
     Route: 065
  7. LOMOTIL [Concomitant]
     Route: 065

REACTIONS (27)
  - ABDOMINAL PAIN [None]
  - ACIDOSIS [None]
  - AORTIC STENOSIS [None]
  - CARDIAC ARREST [None]
  - COLONIC FISTULA [None]
  - CORONARY ARTERY DISEASE [None]
  - DEEP VEIN THROMBOSIS [None]
  - EAR INFECTION [None]
  - FATIGUE [None]
  - GALLBLADDER DISORDER [None]
  - GASTROINTESTINAL HAEMORRHAGE [None]
  - HYPERKALAEMIA [None]
  - HYPONATRAEMIA [None]
  - MALAISE [None]
  - MYOCARDIAL INFARCTION [None]
  - NEPHROSCLEROSIS [None]
  - PERITONITIS [None]
  - PYURIA [None]
  - RENAL FAILURE ACUTE [None]
  - RENAL FAILURE CHRONIC [None]
  - RESPIRATORY FUME INHALATION DISORDER [None]
  - SEPSIS [None]
  - SUDDEN HEARING LOSS [None]
  - TOE DEFORMITY [None]
  - UROSEPSIS [None]
  - WEIGHT DECREASED [None]
  - WHITE BLOOD CELL COUNT ABNORMAL [None]
